FAERS Safety Report 8534815-5 (Version None)
Quarter: 2012Q3

REPORT INFORMATION
  Report Type: 
  Country: None (occurrence: None)
  Receive Date: 20120724
  Receipt Date: 20120713
  Transmission Date: 20120928
  Serious: Yes (Death)
  Sender: FDA-Public Use
  Company Number: IT-CELGENEUS-083-21880-12063896

PATIENT
  Sex: Male

DRUGS (9)
  1. LASIX [Concomitant]
     Dosage: 50 MILLIGRAM
     Route: 065
     Dates: start: 20110413
  2. REVLIMID [Suspect]
     Dosage: 25 MILLIGRAM
     Route: 048
     Dates: start: 20091117, end: 20091207
  3. REVLIMID [Suspect]
     Dosage: 25 MILLIGRAM
     Route: 048
     Dates: start: 20101210, end: 20101218
  4. ALLOPURINOL [Concomitant]
     Dosage: 150 MILLIGRAM
     Route: 065
     Dates: start: 20090904, end: 20110701
  5. ASPIRIN [Concomitant]
     Dosage: 100 MILLIGRAM
     Route: 065
     Dates: start: 20090904, end: 20110101
  6. CARVEDILOL [Concomitant]
     Dosage: 3.125 MILLIGRAM
     Route: 065
     Dates: start: 20101129, end: 20110404
  7. REVLIMID [Suspect]
     Dosage: 10 MILLIGRAM
     Route: 048
     Dates: start: 20110405, end: 20110412
  8. SELEPARINA [Concomitant]
     Indication: PROPHYLAXIS
     Dosage: .6 MILLILITER
     Route: 065
     Dates: start: 20090424
  9. REVLIMID [Suspect]
     Indication: LYMPHOMA
     Dosage: 25 MILLIGRAM
     Route: 048
     Dates: start: 20090424, end: 20091004

REACTIONS (4)
  - PYREXIA [None]
  - INFECTION [None]
  - CACHEXIA [None]
  - PNEUMONITIS [None]
